FAERS Safety Report 18153501 (Version 1)
Quarter: 2020Q3

REPORT INFORMATION
  Report Type: Report from Study
  Country: BR (occurrence: BR)
  Receive Date: 20200816
  Receipt Date: 20200816
  Transmission Date: 20201103
  Serious: Yes (Hospitalization, Other)
  Sender: FDA-Public Use
  Company Number: NVSC2020BR152624

PATIENT
  Age: 49 Year
  Sex: Female
  Weight: 74 kg

DRUGS (2)
  1. FINGOLIMOD. [Suspect]
     Active Substance: FINGOLIMOD
     Dosage: 0.5 MG, QD
     Route: 065
     Dates: start: 20200529
  2. FINGOLIMOD. [Suspect]
     Active Substance: FINGOLIMOD
     Indication: PRODUCT USED FOR UNKNOWN INDICATION
     Dosage: 0.5 MG, QD
     Route: 065
     Dates: start: 20150312, end: 201909

REACTIONS (8)
  - Pituitary tumour benign [Not Recovered/Not Resolved]
  - Weight increased [Unknown]
  - Lung abscess [Recovered/Resolved]
  - Hair growth abnormal [Unknown]
  - Cushing^s syndrome [Unknown]
  - Pituitary-dependent Cushing^s syndrome [Not Recovered/Not Resolved]
  - Blood pressure increased [Unknown]
  - Cushingoid [Not Recovered/Not Resolved]

NARRATIVE: CASE EVENT DATE: 20171101
